FAERS Safety Report 5873927-1 (Version None)
Quarter: 2008Q3

REPORT INFORMATION
  Report Type: 
  Country: None (occurrence: None)
  Receive Date: 20080905
  Receipt Date: 20080905
  Transmission Date: 20090109
  Serious: Yes (Other)
  Sender: FDA-Public Use
  Company Number: None

PATIENT
  Age: 47 Year
  Sex: Male
  Weight: 76 kg

DRUGS (16)
  1. NOVOSEVEN [Suspect]
     Indication: HAEMORRHAGE
     Dosage: 5,670MCG X 1 INJ
     Route: 042
     Dates: start: 20080715, end: 20080715
  2. AMITRIPTYLINE HCL [Concomitant]
  3. CALCIUM GLUCONATE [Concomitant]
  4. CHLORHEXIDINE GLUCONATE [Concomitant]
  5. ATRIPLA [Concomitant]
  6. NEXIUM [Concomitant]
  7. TRICOR [Concomitant]
  8. FENTANYL [Concomitant]
  9. LASIX [Concomitant]
  10. VERSED [Concomitant]
  11. POTASSIUM CHLORIDE [Concomitant]
  12. TYLENOL (CAPLET) [Concomitant]
  13. DEXTROSE [Concomitant]
  14. NS [Concomitant]
  15. LR [Concomitant]
  16. RED BLOOD CELLS [Concomitant]

REACTIONS (2)
  - INTERNATIONAL NORMALISED RATIO INCREASED [None]
  - PROTHROMBIN TIME PROLONGED [None]
